FAERS Safety Report 9537898 (Version 1)
Quarter: 2013Q3

REPORT INFORMATION
  Report Type: Spontaneous
  Country: US (occurrence: US)
  Receive Date: 20130919
  Receipt Date: 20130919
  Transmission Date: 20140515
  Serious: No
  Sender: FDA-Public Use
  Company Number: US-BAXTER-2013BAX035149

PATIENT
  Sex: Female

DRUGS (1)
  1. VANCOMYCIN INJECTION, USP [Suspect]
     Indication: STREPTOCOCCAL INFECTION
     Route: 042

REACTIONS (1)
  - Rash erythematous [Recovered/Resolved]
